FAERS Safety Report 5855029-3 (Version None)
Quarter: 2008Q3

REPORT INFORMATION
  Report Type: 
  Country: None (occurrence: None)
  Receive Date: 20080822
  Receipt Date: 20080702
  Transmission Date: 20090109
  Serious: No
  Sender: FDA-Public Use
  Company Number: US-ABBOTT-08P-163-0454261-00

PATIENT
  Sex: Female

DRUGS (2)
  1. SYNTHROID [Suspect]
     Indication: DRUG USE FOR UNKNOWN INDICATION
     Dates: start: 20080525, end: 20080525
  2. SYNTHROID [Suspect]
     Dates: start: 20080529

REACTIONS (10)
  - BLOOD PRESSURE FLUCTUATION [None]
  - BURNING SENSATION [None]
  - CHEST DISCOMFORT [None]
  - DIZZINESS [None]
  - DRY MOUTH [None]
  - FLUSHING [None]
  - GAIT DISTURBANCE [None]
  - HYPERSENSITIVITY [None]
  - MUSCLE SPASMS [None]
  - PARAESTHESIA [None]
